FAERS Safety Report 6583516-1 (Version None)
Quarter: 2010Q1

REPORT INFORMATION
  Report Type: 
  Country: None (occurrence: None)
  Receive Date: 20100216
  Receipt Date: 20100204
  Transmission Date: 20100710
  Serious: Yes (Other)
  Sender: FDA-Public Use
  Company Number: PHHY2009JP56423

PATIENT
  Age: 43 Year
  Sex: Female

DRUGS (5)
  1. GLEEVEC [Suspect]
     Indication: ACUTE LYMPHOCYTIC LEUKAEMIA
     Dosage: 600 MG/DAY
     Route: 048
     Dates: start: 20090108, end: 20090305
  2. METHOTREXATE [Suspect]
  3. ARA-C [Suspect]
  4. HYPER-CVAD [Suspect]
  5. DASATINIB [Suspect]
     Dosage: 140 MG
     Route: 048

REACTIONS (6)
  - ALLOGENIC BONE MARROW TRANSPLANTATION THERAPY [None]
  - CYTOGENETIC ANALYSIS ABNORMAL [None]
  - HEADACHE [None]
  - NAUSEA [None]
  - PANCYTOPENIA [None]
  - SUBDURAL HAEMATOMA [None]
